FAERS Safety Report 10010860 (Version 2)
Quarter: 2014Q1

REPORT INFORMATION
  Report Type: Spontaneous
  Country: US (occurrence: US)
  Receive Date: 20140314
  Receipt Date: 20140314
  Transmission Date: 20141002
  Serious: No
  Sender: FDA-Public Use
  Company Number: US-DRREDDYS-USA/USA/13/0029382

PATIENT
  Age: 27 Year
  Sex: Female
  Weight: 53.12 kg

DRUGS (1)
  1. CETIRIZINE [Suspect]
     Indication: HYPERSENSITIVITY
     Route: 065
     Dates: start: 20130429

REACTIONS (2)
  - Drug ineffective [Unknown]
  - Product quality issue [Unknown]
